FAERS Safety Report 14491795 (Version 1)
Quarter: 2018Q1

REPORT INFORMATION
  Report Type: Report from Study
  Country: US (occurrence: US)
  Receive Date: 20180206
  Receipt Date: 20180206
  Transmission Date: 20180509
  Serious: No
  Sender: FDA-Public Use
  Company Number: PHEH2018US004288

PATIENT
  Sex: Female
  Weight: 93.9 kg

DRUGS (1)
  1. ILARIS [Suspect]
     Active Substance: CANAKINUMAB
     Indication: STILL^S DISEASE
     Dosage: 150 MG/ML (1.14ML), Q4W
     Route: 058

REACTIONS (3)
  - Nausea [Unknown]
  - Chills [Unknown]
  - Pyrexia [Unknown]
